FAERS Safety Report 6256821-6 (Version None)
Quarter: 2009Q3

REPORT INFORMATION
  Report Type: 
  Country: None (occurrence: None)
  Receive Date: 20090706
  Receipt Date: 20090625
  Transmission Date: 20100115
  Serious: Yes (Other)
  Sender: FDA-Public Use
  Company Number: PHHY2009BE26811

PATIENT
  Sex: Male

DRUGS (6)
  1. ALISKIREN ALI+ [Suspect]
     Indication: HYPERTENSION
     Dosage: 150 MG DAILY
     Route: 048
     Dates: start: 20081201, end: 20090201
  2. ALISKIREN ALI+ [Suspect]
     Dosage: 300 MG DAILY
     Route: 048
     Dates: start: 20090201, end: 20090303
  3. BUMEX [Concomitant]
  4. ESTRACYT [Concomitant]
  5. CYPROTERONE ACETATE [Concomitant]
  6. MARCUMAR [Concomitant]

REACTIONS (4)
  - DYSPNOEA [None]
  - HYPERKALAEMIA [None]
  - OEDEMA [None]
  - RENAL FAILURE [None]
